FAERS Safety Report 4384399-0 (Version None)
Quarter: 2004Q2

REPORT INFORMATION
  Report Type: 
  Country: None (occurrence: None)
  Receive Date: 20040621
  Receipt Date: 20040607
  Transmission Date: 20050107
  Serious: Yes (Hospitalization)
  Sender: FDA-Public Use
  Company Number: 2004AC00138

PATIENT
  Age: 19 Year
  Sex: Male

DRUGS (6)
  1. QUETIAPINE [Suspect]
     Dosage: 9000 MG PO
     Route: 048
  2. OXCARBAZEPINE [Suspect]
     Dosage: 36000 MG PO
     Route: 048
  3. ATOMOXETINE [Suspect]
     Dosage: 1200 MG
  4. ACETAMINOPHEN [Concomitant]
  5. SALICYLATE [Concomitant]
  6. ETHANOL [Concomitant]

REACTIONS (14)
  - AGGRESSION [None]
  - AGITATION [None]
  - ALCOHOL USE [None]
  - DEPRESSED LEVEL OF CONSCIOUSNESS [None]
  - DRUG SCREEN POSITIVE [None]
  - ELECTROCARDIOGRAM QT CORRECTED INTERVAL PROLONGED [None]
  - INTENTIONAL OVERDOSE [None]
  - INTENTIONAL SELF-INJURY [None]
  - LACERATION [None]
  - MULTIPLE DRUG OVERDOSE [None]
  - SELF INJURIOUS BEHAVIOUR [None]
  - SOMNOLENCE [None]
  - SUICIDE ATTEMPT [None]
  - VOMITING [None]
